FAERS Safety Report 7311058-4 (Version None)
Quarter: 2011Q1

REPORT INFORMATION
  Report Type: 
  Country: None (occurrence: None)
  Receive Date: 20110224
  Receipt Date: 20110215
  Transmission Date: 20110831
  Serious: Yes (Other)
  Sender: FDA-Public Use
  Company Number: AU-PFIZER INC-2011039200

PATIENT
  Sex: Male

DRUGS (5)
  1. PHYSIOTENS [Concomitant]
  2. SOMAC [Suspect]
     Indication: GASTROINTESTINAL DISORDER
     Dosage: 80 MG, 1X/DAY
     Route: 048
     Dates: end: 20110101
  3. MONOPLUS [Concomitant]
  4. SOMAC [Suspect]
     Indication: DYSPEPSIA
     Dosage: 40 MG, 1X/DAY
     Route: 048
     Dates: start: 20100901
  5. ATACAND [Concomitant]

REACTIONS (22)
  - COLD SWEAT [None]
  - DIZZINESS [None]
  - HEADACHE [None]
  - NAUSEA [None]
  - DYSPEPSIA [None]
  - PRURITUS [None]
  - BLOOD PRESSURE INCREASED [None]
  - HICCUPS [None]
  - DIARRHOEA [None]
  - ABDOMINAL PAIN UPPER [None]
  - LOWER RESPIRATORY TRACT INFECTION [None]
  - MOUTH ULCERATION [None]
  - SWELLING FACE [None]
  - VOMITING [None]
  - DRY MOUTH [None]
  - APHAGIA [None]
  - FLATULENCE [None]
  - CONSTIPATION [None]
  - VISION BLURRED [None]
  - DRUG HYPERSENSITIVITY [None]
  - WEIGHT DECREASED [None]
  - DYSGEUSIA [None]
